FAERS Safety Report 9282615 (Version 2)
Quarter: 2013Q2

REPORT INFORMATION
  Report Type: Spontaneous
  Country: BR (occurrence: BR)
  Receive Date: 20130510
  Receipt Date: 20130610
  Transmission Date: 20140414
  Serious: Yes (Other)
  Sender: FDA-Public Use
  Company Number: PHHY2013BR045387

PATIENT
  Sex: Female
  Weight: 59 kg

DRUGS (6)
  1. BUFFERIN [Suspect]
     Indication: CAROTID ARTERY OCCLUSION
     Dosage: 1 DF, DAILY
     Route: 048
     Dates: start: 2007
  2. BUFFERIN [Suspect]
     Indication: HYPERTENSION
  3. BUFFERIN [Suspect]
     Indication: OFF LABEL USE
  4. CAPTOPRIL [Concomitant]
     Indication: HYPERTENSION
     Dosage: 1 DF, UNK
     Route: 048
     Dates: start: 2008
  5. ATENOLOL [Concomitant]
     Indication: ARRHYTHMIA
     Dosage: 0.33 DF, UNK
     Route: 048
     Dates: start: 2008
  6. LOSARTAN POTASSIUM [Concomitant]
     Indication: HYPERTENSION
     Dosage: UNK UKN, UNK
     Dates: start: 2007, end: 2007

REACTIONS (7)
  - Hiatus hernia [Recovered/Resolved]
  - Blood pressure decreased [Unknown]
  - Cataract [Recovered/Resolved]
  - Ulcer [Unknown]
  - Blood pressure systolic increased [Not Recovered/Not Resolved]
  - Gastrooesophageal reflux disease [Recovering/Resolving]
  - Asthenia [Recovered/Resolved]
